FAERS Safety Report 12596054 (Version 1)
Quarter: 2016Q3

REPORT INFORMATION
  Report Type: Report from Study
  Country: US (occurrence: US)
  Receive Date: 20160726
  Receipt Date: 20160726
  Transmission Date: 20161109
  Serious: No
  Sender: FDA-Public Use
  Company Number: US-AMGEN-USASL2016042818

PATIENT
  Age: 76 Year
  Sex: Male

DRUGS (10)
  1. ZOMETA [Concomitant]
     Active Substance: ZOLEDRONIC ACID
     Dosage: UNK
     Dates: start: 201605
  2. CALCIUM [Concomitant]
     Active Substance: CALCIUM
     Dosage: 20 MEQ, HALF QD
  3. DECADRON [Concomitant]
     Active Substance: DEXAMETHASONE
     Dosage: 4 MG
  4. TRAMADOL. [Concomitant]
     Active Substance: TRAMADOL
     Dosage: 50 MG, PRN
  5. KYPROLIS [Suspect]
     Active Substance: CARFILZOMIB
     Indication: PLASMA CELL MYELOMA
     Dosage: 4 MG
     Route: 065
  6. WARFARIN [Concomitant]
     Active Substance: WARFARIN
     Dosage: 7.5 MG, QD
  7. KYPROLIS [Suspect]
     Active Substance: CARFILZOMIB
     Dosage: UNK
     Route: 065
     Dates: start: 201601
  8. DIAZEPAM. [Concomitant]
     Active Substance: DIAZEPAM
     Dosage: BID
  9. ACYCLOVIR                          /00587301/ [Concomitant]
     Active Substance: ACYCLOVIR
     Dosage: 400 MG, BID
  10. LANSOPRAZOLE. [Concomitant]
     Active Substance: LANSOPRAZOLE
     Dosage: 30 MG, DAILY

REACTIONS (5)
  - Bone disorder [Unknown]
  - Musculoskeletal chest pain [Unknown]
  - Light chain analysis increased [Unknown]
  - Rib fracture [Unknown]
  - Fracture [Unknown]

NARRATIVE: CASE EVENT DATE: 2016
